FAERS Safety Report 5195172-8 (Version None)
Quarter: 2006Q4

REPORT INFORMATION
  Report Type: 
  Country: None (occurrence: None)
  Receive Date: 20061229
  Receipt Date: 20060518
  Transmission Date: 20070319
  Serious: Yes (Life-Threatening, Hospitalization)
  Sender: FDA-Public Use
  Company Number: FR-PFIZER INC-2006066218

PATIENT
  Age: 53 Year
  Sex: Female
  Weight: 81 kg

DRUGS (7)
  1. AMLOR [Suspect]
     Indication: ESSENTIAL HYPERTENSION
     Route: 048
  2. CLINDAMYCIN HYDROCHLORIDE [Suspect]
     Indication: TOXOPLASMOSIS
     Route: 048
     Dates: start: 20060224, end: 20060307
  3. CLOBAZAM [Suspect]
     Route: 048
  4. PYRIMETHAMINE TAB [Suspect]
     Indication: TOXOPLASMOSIS
     Route: 048
  5. OXCARBAZEPINE [Suspect]
     Route: 048
  6. CEFTRIAXONE [Suspect]
     Indication: URINARY TRACT INFECTION
     Route: 042
     Dates: start: 20060307, end: 20060307
  7. SULFADIAZINE [Concomitant]

REACTIONS (1)
  - TOXIC EPIDERMAL NECROLYSIS [None]
